FAERS Safety Report 21702800 (Version 1)
Quarter: 2022Q4

REPORT INFORMATION
  Report Type: Spontaneous
  Country: CA (occurrence: CA)
  Receive Date: 20221209
  Receipt Date: 20221209
  Transmission Date: 20230113
  Serious: Yes (Life-Threatening, Other)
  Sender: FDA-Public Use
  Company Number: CA-TEVA-2022-CA-2028928

PATIENT
  Sex: Female
  Weight: 40 kg

DRUGS (2)
  1. VINCRISTINE SULFATE [Suspect]
     Active Substance: VINCRISTINE SULFATE
     Indication: Product used for unknown indication
     Route: 065
  2. VINCRISTINE SULFATE [Suspect]
     Active Substance: VINCRISTINE SULFATE
     Route: 065

REACTIONS (6)
  - Back disorder [Unknown]
  - Gait inability [Unknown]
  - Lung disorder [Unknown]
  - Spinal fracture [Unknown]
  - Suicidal ideation [Unknown]
  - Intentional overdose [Unknown]
